FAERS Safety Report 7800936-5 (Version None)
Quarter: 2011Q4

REPORT INFORMATION
  Report Type: 
  Country: None (occurrence: None)
  Receive Date: 20111006
  Receipt Date: 20110215
  Transmission Date: 20120403
  Serious: No
  Sender: FDA-Public Use
  Company Number: US-BAYER-2011-015423

PATIENT
  Sex: Female

DRUGS (1)
  1. CIPRO [Suspect]
     Indication: STAPHYLOCOCCAL INFECTION

REACTIONS (1)
  - NO ADVERSE EVENT [None]
